FAERS Safety Report 7632655-2 (Version None)
Quarter: 2011Q3

REPORT INFORMATION
  Report Type: 
  Country: None (occurrence: None)
  Receive Date: 20110725
  Receipt Date: 20101115
  Transmission Date: 20111222
  Serious: No
  Sender: FDA-Public Use
  Company Number: US-BRISTOL-MYERS SQUIBB COMPANY-15385461

PATIENT
  Age: 73 Year
  Sex: Male
  Weight: 159 kg

DRUGS (6)
  1. COUMADIN [Suspect]
     Dosage: TAKIND DAILY EXEPT MONDAY(1 TAB PER DAY)
  2. MIRAPEX [Concomitant]
  3. AVODART [Concomitant]
  4. PRILOSEC [Concomitant]
  5. FLOMAX [Concomitant]
  6. LASIX [Concomitant]

REACTIONS (2)
  - DIZZINESS [None]
  - INTERNATIONAL NORMALISED RATIO DECREASED [None]
